FAERS Safety Report 15452207 (Version 1)
Quarter: 2018Q4

REPORT INFORMATION
  Report Type: Spontaneous
  Country: NL (occurrence: NL)
  Receive Date: 20181001
  Receipt Date: 20181001
  Transmission Date: 20190204
  Serious: Yes (Hospitalization, Other)
  Sender: FDA-Public Use
  Company Number: NL-ELI_LILLY_AND_COMPANY-NL201808007227

PATIENT
  Sex: Female

DRUGS (1)
  1. ZYPADHERA [Suspect]
     Active Substance: OLANZAPINE PAMOATE
     Indication: SCHIZOAFFECTIVE DISORDER
     Dosage: 405 MG, 2/M
     Route: 030

REACTIONS (10)
  - Dizziness [Unknown]
  - Product administered at inappropriate site [Unknown]
  - Abnormal behaviour [Unknown]
  - Extrapyramidal disorder [Unknown]
  - Sedation [Unknown]
  - Antipsychotic drug level increased [Unknown]
  - Overdose [Unknown]
  - Post-injection delirium sedation syndrome [Unknown]
  - Asthenia [Unknown]
  - Tremor [Unknown]

NARRATIVE: CASE EVENT DATE: 20180814
